FAERS Safety Report 13841367 (Version 2)
Quarter: 2017Q3

REPORT INFORMATION
  Report Type: Spontaneous
  Country: CO (occurrence: CO)
  Receive Date: 20170807
  Receipt Date: 20170825
  Transmission Date: 20171127
  Serious: No
  Sender: FDA-Public Use
  Company Number: CO-ELI_LILLY_AND_COMPANY-CO201707011669

PATIENT
  Sex: Female

DRUGS (6)
  1. ASPIRIN                            /00002701/ [Concomitant]
     Active Substance: ASPIRIN
     Indication: PRODUCT USED FOR UNKNOWN INDICATION
  2. CALCIUM CARBONATE. [Concomitant]
     Active Substance: CALCIUM CARBONATE
     Indication: PREGNANCY
  3. HUMULIN N [Suspect]
     Active Substance: INSULIN HUMAN
     Dosage: 13 U, EACH EVENING
     Route: 065
     Dates: start: 20170426
  4. HUMULIN N [Suspect]
     Active Substance: INSULIN HUMAN
     Indication: GESTATIONAL DIABETES
     Dosage: 18 U, EACH MORNING
     Route: 065
     Dates: start: 20170426
  5. FOLIC ACID. [Concomitant]
     Active Substance: FOLIC ACID
     Indication: PREGNANCY
  6. METFORMIN [Concomitant]
     Active Substance: METFORMIN HYDROCHLORIDE
     Indication: GESTATIONAL DIABETES
     Dosage: 500 MG, EACH EVENING

REACTIONS (2)
  - Wrong technique in product usage process [Unknown]
  - Maternal exposure during pregnancy [Unknown]
